FAERS Safety Report 8552269-X (Version None)
Quarter: 2012Q3

REPORT INFORMATION
  Report Type: 
  Country: None (occurrence: None)
  Receive Date: 20120723
  Receipt Date: 20120723
  Transmission Date: 20120928
  Serious: Yes (Other)
  Sender: FDA-Public Use
  Company Number: None

PATIENT
  Age: 68 Year
  Sex: Female
  Weight: 77.1115 kg

DRUGS (2)
  1. LOVASTATIN [Suspect]
     Indication: CORONARY ARTERY DISEASE
     Dosage: 20 MG, 40 MG 1/DAY
     Dates: start: 20050101, end: 20090101
  2. SIMVASTATIN [Suspect]
     Indication: CORONARY ARTERY DISEASE
     Dosage: 20 MG, 40 MG 1/DAY
     Dates: start: 20090102, end: 20120101

REACTIONS (6)
  - DRY SKIN [None]
  - MEMORY IMPAIRMENT [None]
  - LYMPHADENOPATHY [None]
  - SKIN LESION [None]
  - FEELING ABNORMAL [None]
  - LETHARGY [None]
